FAERS Safety Report 8306817-5 (Version None)
Quarter: 2012Q2

REPORT INFORMATION
  Report Type: 
  Country: None (occurrence: None)
  Receive Date: 20120424
  Receipt Date: 20120419
  Transmission Date: 20120825
  Serious: No
  Sender: FDA-Public Use
  Company Number: US-PFIZER INC-2012098491

PATIENT
  Sex: Female
  Weight: 63.492 kg

DRUGS (4)
  1. NEXIUM [Concomitant]
     Indication: GASTRIC ULCER
     Dosage: 40 MG, AS NEEDED
  2. CELEBREX [Suspect]
     Dosage: 200 MG, 2X/DAY
  3. CELEBREX [Suspect]
     Indication: ARTHRALGIA
     Dosage: 150 MG, DAILY
     Dates: start: 20110101
  4. VENLAFAXINE [Concomitant]
     Indication: DEPRESSION
     Dosage: 150 MG, DAILY

REACTIONS (2)
  - THERAPEUTIC RESPONSE DECREASED [None]
  - DIARRHOEA [None]
